FAERS Safety Report 14468246 (Version 1)
Quarter: 2018Q1

REPORT INFORMATION
  Report Type: Report from Study
  Country: US (occurrence: US)
  Receive Date: 20180131
  Receipt Date: 20180131
  Transmission Date: 20180509
  Serious: Yes (Death, Hospitalization, Other)
  Sender: FDA-Public Use
  Company Number: US-BAYER-2017-249992

PATIENT
  Age: 78 Year
  Sex: Male
  Weight: 120.18 kg

DRUGS (3)
  1. ADEMPAS [Suspect]
     Active Substance: RIOCIGUAT
     Indication: PULMONARY ARTERIAL HYPERTENSION
     Dosage: 0.5 MG, TID
     Route: 048
     Dates: start: 20171212
  2. ADEMPAS [Suspect]
     Active Substance: RIOCIGUAT
     Indication: PULMONARY ARTERIAL HYPERTENSION
     Dosage: 1 MG, TID
     Route: 048
  3. OPSUMIT [Concomitant]
     Active Substance: MACITENTAN

REACTIONS (7)
  - Abdominal distension [Unknown]
  - Hypoacusis [None]
  - Spinal column stenosis [Unknown]
  - Eustachian tube obstruction [None]
  - Death [Fatal]
  - Cardiac failure congestive [None]
  - Peripheral swelling [Unknown]

NARRATIVE: CASE EVENT DATE: 20180119
